FAERS Safety Report 21709133 (Version 1)
Quarter: 2022Q4

REPORT INFORMATION
  Report Type: Spontaneous
  Country: CN (occurrence: CN)
  Receive Date: 20221210
  Receipt Date: 20221210
  Transmission Date: 20230113
  Serious: Yes (Hospitalization)
  Sender: FDA-Public Use
  Company Number: CN-Accord-290981

PATIENT
  Age: 67 Year
  Sex: Male

DRUGS (2)
  1. PACLITAXEL [Suspect]
     Active Substance: PACLITAXEL
     Indication: Cholangiocarcinoma
     Dosage: EVERY THREE WEEKS
     Dates: start: 20190911, end: 20200205
  2. CAMRELIZUMAB [Suspect]
     Active Substance: CAMRELIZUMAB
     Indication: Cholangiocarcinoma
     Dosage: EVERY THREE WEEKS
     Dates: start: 20190911, end: 202201

REACTIONS (1)
  - Reactive capillary endothelial proliferation [Unknown]

NARRATIVE: CASE EVENT DATE: 20191001
